FAERS Safety Report 5487645-5 (Version None)
Quarter: 2007Q4

REPORT INFORMATION
  Report Type: 
  Country: None (occurrence: None)
  Receive Date: 20071012
  Receipt Date: 20071012
  Transmission Date: 20080405
  Serious: Yes (Other)
  Sender: FDA-Public Use
  Company Number: None

PATIENT
  Age: 12 Year
  Sex: Female
  Weight: 68.0396 kg

DRUGS (3)
  1. AFRIN [Suspect]
     Indication: HYPERSENSITIVITY
     Dosage: SEVERAL TIMES A DA
     Dates: start: 19990301, end: 20071012
  2. AFRIN [Suspect]
     Indication: RHINITIS
     Dosage: SEVERAL TIMES A DA
     Dates: start: 19990301, end: 20071012
  3. AFRIN [Suspect]
     Indication: SINUSITIS
     Dosage: SEVERAL TIMES A DA
     Dates: start: 19990301, end: 20071012

REACTIONS (12)
  - DEPRESSION [None]
  - DRUG DEPENDENCE [None]
  - DYSPNOEA [None]
  - FATIGUE [None]
  - ILL-DEFINED DISORDER [None]
  - INSOMNIA [None]
  - MIGRAINE [None]
  - NASAL CONGESTION [None]
  - PANIC ATTACK [None]
  - RESPIRATORY DISORDER [None]
  - SUFFOCATION FEELING [None]
  - SWELLING [None]
